FAERS Safety Report 25927296 (Version 3)
Quarter: 2025Q4

REPORT INFORMATION
  Report Type: Spontaneous
  Country: EU (occurrence: EU)
  Receive Date: 20251015
  Receipt Date: 20251201
  Transmission Date: 20260118
  Serious: Yes (Hospitalization)
  Sender: MERCK SHARP & DOHME LLC
  Company Number: None

PATIENT
  Sex: Female

DRUGS (3)
  1. JANUMET [Suspect]
     Active Substance: METFORMIN HYDROCHLORIDE\SITAGLIPTIN PHOSPHATE
     Route: 048
     Dates: start: 2025, end: 20250827
  2. EXEMESTANE [Interacting]
     Active Substance: EXEMESTANE
     Route: 048
     Dates: start: 2025, end: 20250827
  3. DAPAGLIFLOZIN PROPANEDIOL [Interacting]
     Active Substance: DAPAGLIFLOZIN PROPANEDIOL
     Route: 048
     Dates: start: 2025, end: 20250827

REACTIONS (5)
  - Cardiac failure acute [Recovering/Resolving]
  - Contraindicated product administered [Recovered/Resolved]
  - Concomitant disease aggravated [Recovering/Resolving]
  - Discontinued product administered [Recovered/Resolved]
  - Chronic kidney disease [Unknown]

NARRATIVE: CASE EVENT DATE: 20250529
